FAERS Safety Report 6202719-9 (Version None)
Quarter: 2009Q2

REPORT INFORMATION
  Report Type: 
  Country: None (occurrence: None)
  Receive Date: 20090526
  Receipt Date: 20090518
  Transmission Date: 20091009
  Serious: Yes (Hospitalization, Disabling, Other)
  Sender: FDA-Public Use
  Company Number: PHHY2009DE20078

PATIENT
  Age: 78 Year
  Sex: Male

DRUGS (1)
  1. DICLOFENAC SODIUM [Suspect]
     Dosage: 50 MG, BID
     Route: 065

REACTIONS (15)
  - BLEEDING TIME PROLONGED [None]
  - COMPARTMENT SYNDROME [None]
  - FASCIOTOMY [None]
  - GAIT DISTURBANCE [None]
  - HAEMATOMA [None]
  - HAEMATOMA EVACUATION [None]
  - HYPOREFLEXIA [None]
  - KNEE ARTHROPLASTY [None]
  - OSTEOARTHRITIS [None]
  - PAIN IN EXTREMITY [None]
  - PLATELET DISORDER [None]
  - PLATELET FUNCTION TEST ABNORMAL [None]
  - POST PROCEDURAL HAEMORRHAGE [None]
  - SENSORY DISTURBANCE [None]
  - SWELLING [None]
